FAERS Safety Report 16772029 (Version 1)
Quarter: 2019Q3

REPORT INFORMATION
  Report Type: Spontaneous
  Country: US (occurrence: US)
  Receive Date: 20190904
  Receipt Date: 20190904
  Transmission Date: 20191005
  Serious: No
  Sender: FDA-Public Use
  Company Number: US-PTC THERAPEUTICS, INC.-US-2019PTC001064

PATIENT
  Sex: Female

DRUGS (1)
  1. EMFLAZA [Suspect]
     Active Substance: DEFLAZACORT
     Indication: TURNER^S SYNDROME
     Dosage: 18 MG, BID
     Route: 048
     Dates: start: 20180314

REACTIONS (2)
  - Off label use [Unknown]
  - Skin atrophy [Unknown]
